FAERS Safety Report 11157233 (Version 2)
Quarter: 2015Q3

REPORT INFORMATION
  Report Type: Report from Study
  Country: JP (occurrence: JP)
  Receive Date: 20150602
  Receipt Date: 20150703
  Transmission Date: 20151125
  Serious: Yes (Other)
  Sender: FDA-Public Use
  Company Number: JP-AMGEN-JPNCT2015017041

PATIENT
  Age: 73 Year
  Sex: Female
  Weight: 41 kg

DRUGS (16)
  1. MAINHEART [Concomitant]
     Active Substance: BISOPROLOL FUMARATE
     Dosage: 5 MG, UNK
     Route: 048
  2. NU-LOTAN [Concomitant]
     Active Substance: LOSARTAN POTASSIUM
     Dosage: 50 MG, UNK
     Route: 048
  3. PL [Concomitant]
     Active Substance: ACETAMINOPHEN\CAFFEINE\PROMETHAZINE\SALICYLAMIDE
     Indication: NASOPHARYNGITIS
     Dosage: UNK
     Route: 048
  4. WARFARIN [Concomitant]
     Active Substance: WARFARIN
     Dosage: 1 MG, UNK
     Route: 048
  5. ATELEC [Concomitant]
     Active Substance: CILNIDIPINE
     Dosage: UNK
     Route: 048
  6. DARBEPOETIN ALFA - KHK [Suspect]
     Active Substance: DARBEPOETIN ALFA
     Indication: GLOMERULONEPHRITIS CHRONIC
     Dosage: 60 MUG, QWK
     Route: 058
     Dates: start: 20110812
  7. DIART [Concomitant]
     Active Substance: AZOSEMIDE
     Dosage: UNK
     Route: 048
  8. FUROSEMIDE. [Concomitant]
     Active Substance: FUROSEMIDE
     Dosage: 40 MG, UNK
     Route: 048
  9. GAMOFA D [Concomitant]
     Active Substance: FAMOTIDINE
     Dosage: 20 MG, UNK
     Route: 048
  10. PARAMIDIN [Concomitant]
     Active Substance: BUCOLOME
     Indication: DRUG INTERACTION
     Dosage: 300 MG, UNK
     Route: 048
  11. CEFZON                             /00559701/ [Concomitant]
     Indication: NASOPHARYNGITIS
     Dosage: 100 MG, UNK
     Route: 048
  12. PENCLUSIN [Concomitant]
     Indication: CONSTIPATION
     Dosage: 12 MG, UNK
     Route: 048
  13. COUGHNOL L [Concomitant]
     Dosage: 45 MG, UNK
     Route: 048
  14. KAYEXALATE [Concomitant]
     Active Substance: SODIUM POLYSTYRENE SULFONATE
     Indication: GLOMERULONEPHRITIS CHRONIC
     Dosage: UNK
     Route: 048
  15. CONIEL [Concomitant]
     Active Substance: BENIDIPINE HYDROCHLORIDE
     Dosage: 4 MG, UNK
     Route: 048
  16. FULPEN [Concomitant]
     Indication: NASOPHARYNGITIS
     Dosage: 4 MG, UNK
     Route: 048

REACTIONS (4)
  - Brain natriuretic peptide increased [Recovering/Resolving]
  - Cardiac failure [Recovering/Resolving]
  - Protein urine present [Recovered/Resolved]
  - Prothrombin time prolonged [Recovering/Resolving]

NARRATIVE: CASE EVENT DATE: 20140303
